FAERS Safety Report 7867739-7 (Version None)
Quarter: 2011Q4

REPORT INFORMATION
  Report Type: 
  Country: None (occurrence: None)
  Receive Date: 20111028
  Receipt Date: 20111024
  Transmission Date: 20120403
  Serious: Yes (Death)
  Sender: FDA-Public Use
  Company Number: PHHY2011FR90749

PATIENT
  Sex: Female

DRUGS (2)
  1. EXJADE [Suspect]
     Indication: IRON OVERLOAD
     Dates: end: 20110228
  2. DESFERAL [Suspect]
     Dosage: 4 G, TWICE PER WEEK
     Route: 058
     Dates: start: 20110228

REACTIONS (1)
  - DEATH [None]
